FAERS Safety Report 23615539 (Version 1)
Quarter: 2024Q1

REPORT INFORMATION
  Report Type: Report from Study
  Country: US (occurrence: US)
  Receive Date: 20240311
  Receipt Date: 20240311
  Transmission Date: 20240410
  Serious: Yes (Hospitalization)
  Sender: FDA-Public Use
  Company Number: US-TAIHOP-2024-002189

PATIENT
  Sex: Male

DRUGS (2)
  1. LONSURF [Suspect]
     Active Substance: TIPIRACIL HYDROCHLORIDE\TRIFLURIDINE
     Indication: Colon cancer
     Dosage: CYCLE UNKNOWN
     Route: 048
  2. VITAMIN D3 [Concomitant]
     Active Substance: CHOLECALCIFEROL
     Indication: Product used for unknown indication

REACTIONS (10)
  - Atrial fibrillation [Unknown]
  - COVID-19 [Unknown]
  - Fatigue [Unknown]
  - Asthenia [Unknown]
  - Stomatitis [Unknown]
  - Decubitus ulcer [Unknown]
  - Hypersomnia [Unknown]
  - Decreased appetite [Unknown]
  - Weight decreased [Unknown]
  - Vitamin D deficiency [Unknown]
